FAERS Safety Report 10620190 (Version 1)
Quarter: 2014Q4

REPORT INFORMATION
  Report Type: Spontaneous
  Country: US (occurrence: US)
  Receive Date: 20141202
  Receipt Date: 20141202
  Transmission Date: 20150529
  Serious: No
  Sender: FDA-Public Use
  Company Number: US-009507513-1407USA011380

PATIENT
  Sex: Female

DRUGS (1)
  1. DR. SCHOLLS ULTRA THIN CORN REMOVERS [Suspect]
     Active Substance: SALICYLIC ACID
     Indication: HYPERKERATOSIS
     Dosage: UNK, UNKNOWN
     Route: 061
     Dates: start: 20140717

REACTIONS (2)
  - Application site pain [Unknown]
  - Application site discolouration [Unknown]

NARRATIVE: CASE EVENT DATE: 20140717
